FAERS Safety Report 5863995-5 (Version None)
Quarter: 2008Q3

REPORT INFORMATION
  Report Type: 
  Country: None (occurrence: None)
  Receive Date: 20080829
  Receipt Date: 20080820
  Transmission Date: 20090109
  Serious: Yes (Life-Threatening, Hospitalization, Other)
  Sender: FDA-Public Use
  Company Number: JP-JNJFOC-20080704833

PATIENT
  Sex: Male
  Weight: 77 kg

DRUGS (12)
  1. REMICADE [Suspect]
     Dosage: 1 DOSE ON AN UNKNOWN DATE
     Route: 042
  2. REMICADE [Suspect]
     Indication: RHEUMATOID ARTHRITIS
     Route: 042
  3. RHEUMATREX [Suspect]
     Route: 048
  4. RHEUMATREX [Suspect]
     Indication: RHEUMATOID ARTHRITIS
     Route: 048
  5. MOVER [Concomitant]
     Indication: RHEUMATOID ARTHRITIS
     Route: 048
  6. PREDNISOLONE [Concomitant]
     Indication: RHEUMATOID ARTHRITIS
  7. GASTER D [Concomitant]
     Indication: PROPHYLAXIS
     Route: 048
  8. MOBIC [Concomitant]
     Indication: RHEUMATOID ARTHRITIS
     Route: 048
  9. PENMALIN [Concomitant]
     Indication: INFECTION
  10. MEROPEN [Concomitant]
     Indication: INFECTION
  11. BROACT [Concomitant]
     Indication: INFECTION
  12. VOLTAREN [Concomitant]

REACTIONS (5)
  - ACUTE RESPIRATORY DISTRESS SYNDROME [None]
  - ATRIAL FIBRILLATION [None]
  - INTERSTITIAL LUNG DISEASE [None]
  - SPUTUM CULTURE POSITIVE [None]
  - TRICUSPID VALVE INCOMPETENCE [None]
